FAERS Safety Report 12675609 (Version 1)
Quarter: 2016Q3

REPORT INFORMATION
  Report Type: Spontaneous
  Country: US (occurrence: None)
  Receive Date: 20160822
  Receipt Date: 20160822
  Transmission Date: 20161109
  Serious: Yes (Other)
  Sender: FDA-Public Use
  Company Number: None

PATIENT
  Age: 82 Year
  Sex: Female
  Weight: 50.8 kg

DRUGS (5)
  1. SINTHROID [Concomitant]
  2. AVASTIN [Concomitant]
     Active Substance: BEVACIZUMAB
  3. ALPHAGAN P [Concomitant]
     Active Substance: BRIMONIDINE TARTRATE
  4. ALPHAGAN P [Suspect]
     Active Substance: BRIMONIDINE TARTRATE
     Indication: INTRAOCULAR PRESSURE TEST ABNORMAL
     Dates: start: 20160523, end: 20160525
  5. PERSERVISION [Concomitant]

REACTIONS (3)
  - Drug dispensing error [None]
  - Expired product administered [None]
  - Adverse drug reaction [None]

NARRATIVE: CASE EVENT DATE: 20160523
